FAERS Safety Report 11397866 (Version 1)
Quarter: 2015Q3

REPORT INFORMATION
  Report Type: Report from Study
  Country: IT (occurrence: IT)
  Receive Date: 20150819
  Receipt Date: 20150819
  Transmission Date: 20151125
  Serious: Yes (Death, Life-Threatening, Hospitalization)
  Sender: FDA-Public Use
  Company Number: IT-ABBVIE-13P-083-1166355-00

PATIENT
  Sex: Female
  Weight: 45 kg

DRUGS (1)
  1. DUODOPA [Suspect]
     Active Substance: CARBIDOPA\LEVODOPA
     Indication: PRODUCT USED FOR UNKNOWN INDICATION
     Dosage: UNKNOWN
     Route: 050
     Dates: start: 20130927, end: 20131227

REACTIONS (5)
  - Cardiac arrest [Fatal]
  - Dyspnoea [Fatal]
  - Cardiac failure [Fatal]
  - Pneumonia [Fatal]
  - Body temperature increased [Fatal]

NARRATIVE: CASE EVENT DATE: 20131023
